FAERS Safety Report 24144047 (Version 1)
Quarter: 2024Q3

REPORT INFORMATION
  Report Type: Report from Study
  Country: AR (occurrence: AR)
  Receive Date: 20240727
  Receipt Date: 20240727
  Transmission Date: 20241017
  Serious: Yes (Hospitalization)
  Sender: JOHNSON AND JOHNSON
  Company Number: AR-JNJFOC-20240761164

PATIENT
  Age: 60 Year
  Sex: Female
  Weight: 67 kg

DRUGS (1)
  1. DARZALEX FASPRO [Suspect]
     Active Substance: DARATUMUMAB\HYALURONIDASE-FIHJ
     Indication: Plasma cell myeloma
     Dosage: 1800 MG/15 ML
     Route: 058
     Dates: start: 20230927

REACTIONS (2)
  - Respiratory syncytial virus infection [Recovering/Resolving]
  - Herpangina [Recovering/Resolving]

NARRATIVE: CASE EVENT DATE: 20240713
